FAERS Safety Report 11383815 (Version 1)
Quarter: 2015Q3

REPORT INFORMATION
  Report Type: Spontaneous
  Country: US (occurrence: US)
  Receive Date: 20150814
  Receipt Date: 20150814
  Transmission Date: 20151125
  Serious: No
  Sender: FDA-Public Use
  Company Number: US-ASTRAZENECA-2015SE75995

PATIENT
  Sex: Female

DRUGS (1)
  1. ARIMIDEX [Suspect]
     Active Substance: ANASTROZOLE
     Indication: OESTROGEN RECEPTOR POSITIVE BREAST CANCER
     Route: 048

REACTIONS (5)
  - Arthralgia [Unknown]
  - Mental impairment [Unknown]
  - Metabolic disorder [Unknown]
  - Activities of daily living impaired [Unknown]
  - Fatigue [Unknown]
